FAERS Safety Report 7796127-7 (Version None)
Quarter: 2011Q4

REPORT INFORMATION
  Report Type: 
  Country: None (occurrence: None)
  Receive Date: 20111004
  Receipt Date: 20110919
  Transmission Date: 20120403
  Serious: Yes (Other)
  Sender: FDA-Public Use
  Company Number: GB-ASTELLAS-2011EU002166

PATIENT
  Sex: Female
  Weight: 64 kg

DRUGS (11)
  1. COLOFAC [Concomitant]
     Dosage: 135 MG, UID/QD
     Route: 048
  2. LANSOPRAZOLE [Concomitant]
     Indication: GASTROOESOPHAGEAL REFLUX DISEASE
     Dosage: 30 MG, UID/QD
     Route: 048
  3. FLUTICASONE PROPIONATE [Concomitant]
     Indication: RHINITIS
     Dosage: UNK
     Route: 045
  4. CARBOMER [Concomitant]
     Indication: DRY EYE
     Dosage: UNK
     Route: 065
  5. SIMVASTATIN [Concomitant]
     Dosage: 20 MG, UNKNOWN/D
     Dates: start: 20080201
  6. MEBEVERINE [Concomitant]
     Indication: IRRITABLE BOWEL SYNDROME
     Dosage: 135 MG, TID
     Route: 065
  7. TEMAZEPAM [Concomitant]
     Dosage: UNK
     Route: 065
  8. MIRTAZAPINE [Concomitant]
     Indication: DEPRESSION
     Dosage: 15 MG, UNKNOWN/D
     Route: 048
  9. VESICARE [Suspect]
     Indication: HYPERTONIC BLADDER
     Dosage: 5 MG, UNKNOWN/D
     Route: 048
     Dates: start: 20110118, end: 20110310
  10. SIMVASTATIN [Concomitant]
     Indication: HYPOCHOLESTEROLAEMIA
     Dosage: UNK MG, UNKNOWN/D
     Route: 048
     Dates: start: 20070101
  11. CETIRIZINE HCL [Concomitant]
     Indication: RHINITIS
     Dosage: 10 MG, UNKNOWN/D
     Route: 065

REACTIONS (6)
  - CONSTIPATION [None]
  - FATIGUE [None]
  - SOMNOLENCE [None]
  - DECREASED APPETITE [None]
  - DRY MOUTH [None]
  - DYSGEUSIA [None]
